FAERS Safety Report 23242094 (Version 1)
Quarter: 2023Q4

REPORT INFORMATION
  Report Type: Spontaneous
  Country: US (occurrence: None)
  Receive Date: 20231129
  Receipt Date: 20231129
  Transmission Date: 20240109
  Serious: Yes (Hospitalization)
  Sender: FDA-Public Use
  Company Number: None

PATIENT
  Sex: Female

DRUGS (2)
  1. ICATIBANT ACETATE [Suspect]
     Active Substance: ICATIBANT ACETATE
     Indication: Complement deficiency disease
     Dosage: 30MG PRN SUBCUTANEOUS?
     Route: 058
     Dates: start: 202110
  2. RUCONEST SDV [Concomitant]

REACTIONS (2)
  - Stress [None]
  - Haematological infection [None]
